FAERS Safety Report 7125095-6 (Version None)
Quarter: 2010Q4

REPORT INFORMATION
  Report Type: 
  Country: None (occurrence: None)
  Receive Date: 20101129
  Receipt Date: 20101028
  Transmission Date: 20110411
  Serious: Yes (Hospitalization)
  Sender: FDA-Public Use
  Company Number: US-AMGEN-USASP2010002235

PATIENT

DRUGS (1)
  1. ENBREL [Suspect]
     Indication: RHEUMATOID ARTHRITIS
     Dosage: 50 MG, 2 TIMES/WK
     Dates: start: 20010501, end: 20101001

REACTIONS (6)
  - ARTHRALGIA [None]
  - INJECTION SITE PAIN [None]
  - JOINT STIFFNESS [None]
  - JOINT SWELLING [None]
  - OBESITY [None]
  - PYREXIA [None]
